FAERS Safety Report 8847042 (Version 1)
Quarter: 2012Q4

REPORT INFORMATION
  Report Type: Spontaneous
  Country: JP (occurrence: None)
  Receive Date: 20121016
  Receipt Date: 20121016
  Transmission Date: 20130627
  Serious: Yes (Hospitalization)
  Sender: FDA-Public Use
  Company Number: US-2012-10974

PATIENT
  Age: 38 Year
  Sex: Male

DRUGS (2)
  1. CILOSTAZOL [Suspect]
  2. CILOSTAZOL [Suspect]

REACTIONS (3)
  - Sinus tachycardia [None]
  - Ventricular fibrillation [None]
  - Syncope [None]
